FAERS Safety Report 23554720 (Version 1)
Quarter: 2024Q1

REPORT INFORMATION
  Report Type: Spontaneous
  Country: US (occurrence: None)
  Receive Date: 20240222
  Receipt Date: 20240222
  Transmission Date: 20240409
  Serious: Yes (Disabling, Other)
  Sender: FDA-Public Use
  Company Number: None

PATIENT
  Age: 61 Year
  Sex: Female

DRUGS (1)
  1. FOSAMAX [Suspect]
     Active Substance: ALENDRONATE SODIUM
     Indication: Bone density decreased

REACTIONS (5)
  - Pain [None]
  - Muscle rupture [None]
  - Ligament rupture [None]
  - Rotator cuff syndrome [None]
  - Inflammation [None]

NARRATIVE: CASE EVENT DATE: 20220902
